FAERS Safety Report 18618540 (Version 2)
Quarter: 2020Q4

REPORT INFORMATION
  Report Type: Report from Study
  Country: US (occurrence: US)
  Receive Date: 20201215
  Receipt Date: 20201223
  Transmission Date: 20210114
  Serious: Yes (Hospitalization, Other)
  Sender: FDA-Public Use
  Company Number: US-HBP-2020US021346

PATIENT
  Age: 68 Year
  Sex: Male

DRUGS (19)
  1. POTASSIUM                          /00031402/ [Concomitant]
     Active Substance: POTASSIUM
     Dosage: UNK, UNKNOWN
  2. SIMVASTATIN. [Concomitant]
     Active Substance: SIMVASTATIN
     Dosage: UNK, UNKNOWN
  3. DAILY VITE                         /07652901/ [Concomitant]
     Dosage: UNK, UNKNOWN
  4. NOVOLOG [Concomitant]
     Active Substance: INSULIN ASPART
     Dosage: UNK, UNKNOWN
  5. VITAMIN C [Concomitant]
     Active Substance: ASCORBIC ACID
     Dosage: UNK, UNKNOWN
  6. JANUMET [Concomitant]
     Active Substance: METFORMIN HYDROCHLORIDE\SITAGLIPTIN PHOSPHATE
     Dosage: UNK, UNKNOWN
  7. OMEGA 3 ACID ETHYL ESTERS [Concomitant]
     Active Substance: OMEGA-3-ACID ETHYL ESTERS
     Dosage: UNK, UNKNOWN
  8. AMITIZA [Concomitant]
     Active Substance: LUBIPROSTONE
     Dosage: UNK, UNKNOWN
  9. DEXILANT [Concomitant]
     Active Substance: DEXLANSOPRAZOLE
     Dosage: UNK, UNKNOWN
  10. VALCHLOR [Suspect]
     Active Substance: MECHLORETHAMINE
     Indication: CUTANEOUS T-CELL LYMPHOMA
     Dosage: UNK, QD
     Route: 061
     Dates: start: 20151130
  11. SENOKOT [Concomitant]
     Active Substance: SENNOSIDES
     Dosage: UNK, UNKNOWN
  12. KADIAN [Concomitant]
     Active Substance: MORPHINE SULFATE
     Dosage: UNK, UNKNOWN
  13. ZINC                               /00156502/ [Concomitant]
     Dosage: UNK, UNKNOWN
  14. VALCHLOR [Suspect]
     Active Substance: MECHLORETHAMINE
     Dosage: UNK, 3-4 TIMES PER DAY
     Route: 061
  15. TOPROL XL [Concomitant]
     Active Substance: METOPROLOL SUCCINATE
     Dosage: UNK, UNKNOWN
  16. FLOMAX [Concomitant]
     Active Substance: TAMSULOSIN HYDROCHLORIDE
     Dosage: UNK, UNKNOWN
  17. RITALIN [Concomitant]
     Active Substance: METHYLPHENIDATE HYDROCHLORIDE
     Dosage: UNK, UNKNOWN
  18. TEMAZEPAM. [Concomitant]
     Active Substance: TEMAZEPAM
     Dosage: UNK, UNKNOWN
  19. COENZYME Q10 [Concomitant]
     Active Substance: DIETARY SUPPLEMENT\UBIDECARENONE
     Dosage: UNK, UNKNOWN

REACTIONS (15)
  - Skin neoplasm excision [Recovered/Resolved]
  - Hepatic failure [Not Recovered/Not Resolved]
  - Off label use [Unknown]
  - Intentional product use issue [Unknown]
  - Gait disturbance [Not Recovered/Not Resolved]
  - Malignant melanoma [Recovered/Resolved]
  - Rash pruritic [Not Recovered/Not Resolved]
  - Skin weeping [Recovered/Resolved]
  - Skin discharge [Recovered/Resolved]
  - Therapeutic product effect decreased [Unknown]
  - Bladder cancer [Recovered/Resolved]
  - Intracardiac pressure increased [Not Recovered/Not Resolved]
  - Ascites [Not Recovered/Not Resolved]
  - Abdominal cavity drainage [Not Recovered/Not Resolved]
  - Treatment noncompliance [Unknown]

NARRATIVE: CASE EVENT DATE: 201911
